FAERS Safety Report 18645610 (Version 1)
Quarter: 2020Q4

REPORT INFORMATION
  Report Type: Spontaneous
  Country: DE (occurrence: DE)
  Receive Date: 20201221
  Receipt Date: 20201221
  Transmission Date: 20210114
  Serious: Yes (Life-Threatening, Hospitalization, Other)
  Sender: FDA-Public Use
  Company Number: DE-US-PROVELL PHARMACEUTICALS LLC-E2B_90080172

PATIENT
  Age: 77 Year
  Sex: Female

DRUGS (13)
  1. DIGITOXIN [Suspect]
     Active Substance: DIGITOXIN
     Indication: PRODUCT USED FOR UNKNOWN INDICATION
     Dosage: 0.07 MG, 1-0-0-0, TABLETS
     Route: 048
  2. SITAGLIPTIN [Suspect]
     Active Substance: SITAGLIPTIN
     Indication: PRODUCT USED FOR UNKNOWN INDICATION
     Dosage: 100 MG, 1-0-0-0, TABLETS
     Route: 048
  3. LACTULOSE. [Concomitant]
     Active Substance: LACTULOSE
     Indication: PRODUCT USED FOR UNKNOWN INDICATION
     Dosage: 10 ML, 1-0-0-0,SOLUTION
     Route: 048
  4. PANTOPRAZOL [Concomitant]
     Active Substance: PANTOPRAZOLE SODIUM
     Indication: PRODUCT USED FOR UNKNOWN INDICATION
     Dosage: 40 MG, 1-0-0-0, TABLETS
     Route: 048
  5. METAMIZOL                          /06276702/ [Concomitant]
     Active Substance: METAMIZOLE
     Indication: PRODUCT USED FOR UNKNOWN INDICATION
     Dosage: 500 MG, 1-0-0-0,, TABLETS
     Route: 048
  6. LEVOTHYROXINE SODIUM. [Suspect]
     Active Substance: LEVOTHYROXINE SODIUM
     Indication: PRODUCT USED FOR UNKNOWN INDICATION
     Dosage: 125 UG, 1-0-0-0, TABLETS
     Route: 048
  7. SPIRONOLACTON [Suspect]
     Active Substance: SPIRONOLACTONE
     Indication: PRODUCT USED FOR UNKNOWN INDICATION
     Dosage: 50 MG, 1-0-0-0, TABLETS
     Route: 048
     Dates: start: 202003
  8. EDOXABAN [Concomitant]
     Active Substance: EDOXABAN TOSYLATE
     Indication: PRODUCT USED FOR UNKNOWN INDICATION
     Dosage: 30 MG, 1-0-0-0, TABLETS
     Route: 048
  9. METFORMIN [Concomitant]
     Active Substance: METFORMIN HYDROCHLORIDE
     Indication: PRODUCT USED FOR UNKNOWN INDICATION
     Dosage: 1000 MG, 0.5-0-0.5-0, TABLETS
     Route: 048
  10. ZOLPIDEM [Concomitant]
     Active Substance: ZOLPIDEM TARTRATE
     Indication: PRODUCT USED FOR UNKNOWN INDICATION
     Dosage: 10 MG, 0-0-0-1, TABLETS
     Route: 048
  11. CARVEDILOL. [Suspect]
     Active Substance: CARVEDILOL
     Indication: PRODUCT USED FOR UNKNOWN INDICATION
     Dosage: 6.25 MG, 1-0-1-0, TABLETS
     Route: 048
     Dates: start: 202003
  12. EISEN                              /00023501/ [Concomitant]
     Active Substance: IRON
     Indication: PRODUCT USED FOR UNKNOWN INDICATION
     Dosage: 100 MG, 1-0-0-0, CAPSULE
     Route: 048
  13. TORASEMID [Suspect]
     Active Substance: TORSEMIDE
     Indication: PRODUCT USED FOR UNKNOWN INDICATION
     Dosage: 10 MG, 1-0-0-0, TABLETS
     Route: 048

REACTIONS (11)
  - Syncope [Unknown]
  - Arrhythmia [Recovering/Resolving]
  - Bradycardia [Recovering/Resolving]
  - Palpitations [Recovering/Resolving]
  - General physical health deterioration [Recovering/Resolving]
  - Hyperkalaemia [Unknown]
  - Condition aggravated [Recovering/Resolving]
  - Product monitoring error [Unknown]
  - Ventricular arrhythmia [Recovering/Resolving]
  - Tachycardia [Recovering/Resolving]
  - Acute kidney injury [Unknown]

NARRATIVE: CASE EVENT DATE: 20200301
